FAERS Safety Report 9852048 (Version 2)
Quarter: 2014Q1

REPORT INFORMATION
  Report Type: Spontaneous
  Country: US (occurrence: US)
  Receive Date: 20140129
  Receipt Date: 20140203
  Transmission Date: 20141002
  Serious: No
  Sender: FDA-Public Use
  Company Number: US-PFIZER INC-2014023967

PATIENT
  Age: 86 Year
  Sex: Male
  Weight: 73.47 kg

DRUGS (11)
  1. NITROSTAT [Suspect]
     Indication: ANGINA PECTORIS
     Dosage: 0.4 MG, AS NEEDED
     Route: 060
  2. NITROSTAT [Suspect]
     Dosage: 0.4 MG, AS NEEDED
  3. BENZOCAINE [Concomitant]
     Dosage: 20 MG, 1X/DAY
  4. PLAVIX [Concomitant]
     Dosage: 75 MG, 1X/DAY
  5. ALLOPURINOL [Concomitant]
     Dosage: 150 MG, 1X/DAY
  6. VITAMIN D [Concomitant]
     Dosage: UNK, MONTHLY
  7. METOPROLOL [Concomitant]
     Dosage: 12.5 MG, 2X/DAY
  8. METOPROLOL [Concomitant]
     Dosage: 2.5 MG, 2X/DAY
  9. NITROGLYCERIN [Concomitant]
     Dosage: 0.4 MG, 1X/DAY (PATCH)
     Route: 062
  10. SIMVASTATIN [Concomitant]
     Dosage: 10 MG, DAILY
  11. OMEPRAZOLE [Concomitant]
     Dosage: 20 MG, DAILY

REACTIONS (1)
  - Drug ineffective [Unknown]
